FAERS Safety Report 8358480-5 (Version None)
Quarter: 2012Q2

REPORT INFORMATION
  Report Type: 
  Country: None (occurrence: None)
  Receive Date: 20120514
  Receipt Date: 20120507
  Transmission Date: 20120825
  Serious: Yes (Other)
  Sender: FDA-Public Use
  Company Number: US-BAYER-2012-003803

PATIENT
  Age: 29 Year
  Sex: Female
  Weight: 54.422 kg

DRUGS (11)
  1. TEGRETOL [Concomitant]
     Indication: MOOD ALTERED
     Dosage: UNK
  2. PERCOCET [Concomitant]
     Indication: PAIN
     Dosage: UNK
     Dates: start: 20050101
  3. HYDROCODONE BITARTRATE [Concomitant]
     Indication: PAIN
     Dosage: UNK
     Dates: start: 20050101
  4. YAZ [Suspect]
     Indication: PREMENSTRUAL SYNDROME
     Dosage: UNK
     Route: 048
     Dates: start: 20040101, end: 20090101
  5. LISINOPRIL [Concomitant]
     Indication: HYPERTENSION
     Dosage: UNK
  6. PROZAC [Concomitant]
     Indication: DEPRESSION
     Dosage: UNK
     Dates: start: 20060101, end: 20090101
  7. ATIVAN [Concomitant]
     Indication: ANXIETY
     Dosage: 1 MG, BID
     Dates: start: 20100410, end: 20100411
  8. YASMIN [Suspect]
     Indication: PREMENSTRUAL SYNDROME
     Dosage: UNK
     Dates: start: 20040101, end: 20090101
  9. IBUPROFEN [Concomitant]
     Indication: PAIN
     Dosage: 200 MG, TID
     Dates: start: 20100420, end: 20100422
  10. ZOFRAN [Concomitant]
  11. TYLENOL (CAPLET) [Concomitant]
     Indication: PAIN
     Dosage: UNK
     Dates: start: 20050101

REACTIONS (4)
  - BIPOLAR DISORDER [None]
  - CHOLECYSTITIS CHRONIC [None]
  - EMOTIONAL DISTRESS [None]
  - PAIN [None]
